FAERS Safety Report 7590474-X (Version None)
Quarter: 2011Q3

REPORT INFORMATION
  Report Type: 
  Country: None (occurrence: None)
  Receive Date: 20110705
  Receipt Date: 20110628
  Transmission Date: 20111222
  Serious: Yes (Hospitalization, Other)
  Sender: FDA-Public Use
  Company Number: GB-TEVA-272704ISR

PATIENT
  Age: 50 Year
  Sex: Female

DRUGS (3)
  1. AMISULPRIDE [Suspect]
     Indication: SCHIZOPHRENIA
     Dosage: 400 MILLIGRAM;
     Route: 048
  2. CLARITHROMYCIN [Interacting]
     Indication: LOWER RESPIRATORY TRACT INFECTION
     Dosage: 1000 MILLIGRAM;
     Dates: end: 20110113
  3. CLOZAPINE [Interacting]
     Indication: SCHIZOPHRENIA
     Dosage: 350 MILLIGRAM; 50 MG MANE AND 300 MG NOCTE
     Route: 048
     Dates: start: 19970402

REACTIONS (8)
  - H1N1 INFLUENZA [None]
  - BLOOD PRESSURE INCREASED [None]
  - LOWER RESPIRATORY TRACT INFECTION [None]
  - HEART RATE INCREASED [None]
  - CONFUSIONAL STATE [None]
  - DRUG INTERACTION [None]
  - DYSPNOEA [None]
  - OXYGEN SATURATION DECREASED [None]
